FAERS Safety Report 4785102-2 (Version None)
Quarter: 2005Q3

REPORT INFORMATION
  Report Type: 
  Country: None (occurrence: None)
  Receive Date: 20050928
  Receipt Date: 20050915
  Transmission Date: 20060218
  Serious: No
  Sender: FDA-Public Use
  Company Number: DE_050916882

PATIENT
  Age: 60 Year
  Sex: Female

DRUGS (2)
  1. ZYPREXA [Suspect]
     Indication: PSYCHOTIC DISORDER
     Dosage: 10 MG IN THE EVENING
  2. LORAZEPAM [Concomitant]

REACTIONS (4)
  - ACUTE PSYCHOSIS [None]
  - ALCOHOL USE [None]
  - AMNESIA [None]
  - DRUG DOSE OMISSION [None]
